FAERS Safety Report 5406164-5 (Version None)
Quarter: 2007Q3

REPORT INFORMATION
  Report Type: 
  Country: None (occurrence: None)
  Receive Date: 20070801
  Receipt Date: 20070719
  Transmission Date: 20080115
  Serious: Yes (Hospitalization)
  Sender: FDA-Public Use
  Company Number: 02100-JPN-07-0222

PATIENT
  Age: 81 Year
  Sex: Male

DRUGS (11)
  1. CILOSTAZOL [Suspect]
     Indication: ARTERIOSCLEROSIS
     Dosage: 200 MG, ORAL
     Route: 048
     Dates: start: 20070330, end: 20070406
  2. CILOSTAZOL [Suspect]
     Indication: CEREBRAL INFARCTION
     Dosage: 200 MG, ORAL
     Route: 048
     Dates: start: 20070330, end: 20070406
  3. CILOSTAZOL [Suspect]
     Indication: ARTERIOSCLEROSIS
     Dosage: 200 MG, ORAL
     Route: 048
     Dates: start: 20070417, end: 20070501
  4. CILOSTAZOL [Suspect]
     Indication: CEREBRAL INFARCTION
     Dosage: 200 MG, ORAL
     Route: 048
     Dates: start: 20070417, end: 20070501
  5. ARGATROBAN [Suspect]
     Indication: CEREBRAL INFARCTION
     Dosage: 20 MG, IV
     Route: 042
     Dates: start: 20070330, end: 20070405
  6. ASPIRIN [Suspect]
     Indication: CEREBRAL INFARCTION
     Dosage: 100 MG, ORAL
     Route: 048
     Dates: start: 20070406, end: 20070406
  7. TAMSULOSIN HCL [Concomitant]
  8. RANITIDINE HYDROCHLORIDE [Concomitant]
  9. FLUTICASONE PROPIONATE [Concomitant]
  10. CLOPIDOGREL BISULFATE [Concomitant]
  11. ATORVASTATIN CALCIUM [Concomitant]

REACTIONS (2)
  - BONE MARROW FAILURE [None]
  - CEREBRAL INFARCTION [None]
